FAERS Safety Report 25150244 (Version 1)
Quarter: 2025Q2

REPORT INFORMATION
  Report Type: Spontaneous
  Country: US (occurrence: None)
  Receive Date: 20250401
  Receipt Date: 20250401
  Transmission Date: 20250716
  Serious: Yes (Other)
  Sender: FDA-CTU
  Company Number: None

PATIENT
  Age: 82 Year
  Sex: Female

DRUGS (2)
  1. JAKAFI [Suspect]
     Active Substance: RUXOLITINIB
     Dosage: FREQUENCY : TWICE A DAY;?OTHER ROUTE : BY MOUTH;?
     Route: 050
     Dates: start: 20230905
  2. TOLAK [Suspect]
     Active Substance: FLUOROURACIL

REACTIONS (1)
  - Swelling [None]

NARRATIVE: CASE EVENT DATE: 20250401
